FAERS Safety Report 21420783 (Version 1)
Quarter: 2022Q4

REPORT INFORMATION
  Report Type: Spontaneous
  Country: US (occurrence: US)
  Receive Date: 20221007
  Receipt Date: 20221007
  Transmission Date: 20230112
  Serious: Yes (Other)
  Sender: FDA-Public Use
  Company Number: US-SA-SAC20221004000983

PATIENT
  Age: 64 Year
  Sex: Male

DRUGS (1)
  1. ZANTAC [Suspect]
     Active Substance: RANITIDINE HYDROCHLORIDE
     Indication: Dyspepsia
     Dosage: UNK, QD
     Route: 065
     Dates: start: 200601, end: 201712

REACTIONS (3)
  - Bladder cancer stage II [Recovering/Resolving]
  - Pancreatic carcinoma stage II [Recovering/Resolving]
  - Prostate cancer stage 0 [Recovering/Resolving]

NARRATIVE: CASE EVENT DATE: 20100501
